FAERS Safety Report 20697684 (Version 1)
Quarter: 2022Q2

REPORT INFORMATION
  Report Type: Spontaneous
  Country: US (occurrence: US)
  Receive Date: 20220411
  Receipt Date: 20220411
  Transmission Date: 20220721
  Serious: No
  Sender: FDA-Public Use
  Company Number: US-BIOGEN-2022BI01113187

PATIENT
  Age: 42 Year
  Sex: Male

DRUGS (1)
  1. SPINRAZA [Suspect]
     Active Substance: NUSINERSEN
     Indication: Product used for unknown indication
     Route: 065
     Dates: start: 20220401

REACTIONS (3)
  - Procedural headache [Not Recovered/Not Resolved]
  - Procedural nausea [Not Recovered/Not Resolved]
  - Procedural dizziness [Unknown]

NARRATIVE: CASE EVENT DATE: 20220401
